FAERS Safety Report 13891606 (Version 2)
Quarter: 2017Q4

REPORT INFORMATION
  Report Type: Spontaneous
  Country: US (occurrence: US)
  Receive Date: 20170822
  Receipt Date: 20171129
  Transmission Date: 20180320
  Serious: Yes (Hospitalization, Other)
  Sender: FDA-Public Use
  Company Number: PHEH2017US026354

PATIENT
  Age: 29 Year
  Sex: Female

DRUGS (1)
  1. COSENTYX [Suspect]
     Active Substance: SECUKINUMAB
     Indication: PSORIATIC ARTHROPATHY
     Dosage: UNK UNK, Q4W
     Route: 058
     Dates: start: 20170813

REACTIONS (8)
  - Rash erythematous [Recovered/Resolved with Sequelae]
  - Ulcer [Unknown]
  - Skin plaque [Recovered/Resolved with Sequelae]
  - Blister [Recovered/Resolved with Sequelae]
  - Skin hypopigmentation [Recovered/Resolved with Sequelae]
  - Inappropriate schedule of drug administration [Unknown]
  - Rash generalised [Unknown]
  - Rash [Unknown]

NARRATIVE: CASE EVENT DATE: 20170813
